FAERS Safety Report 25935737 (Version 1)
Quarter: 2025Q4

REPORT INFORMATION
  Report Type: Spontaneous
  Country: US (occurrence: US)
  Receive Date: 20251017
  Receipt Date: 20251017
  Transmission Date: 20260118
  Serious: Yes (Other)
  Sender: NOVO NORDISK
  Company Number: US-NOVOPROD-1539912

PATIENT
  Sex: Female

DRUGS (1)
  1. OZEMPIC [Suspect]
     Active Substance: SEMAGLUTIDE
     Indication: Weight control
     Dosage: 0.25 MG, QW
     Route: 058
     Dates: start: 20250814

REACTIONS (8)
  - Influenza like illness [Recovered/Resolved]
  - Blood glucose decreased [Unknown]
  - Blood pressure increased [Unknown]
  - Chest discomfort [Unknown]
  - Cold sweat [Unknown]
  - Photopsia [Unknown]
  - Off label use [Unknown]
  - Product use in unapproved indication [Unknown]
